FAERS Safety Report 8083970-2 (Version None)
Quarter: 2012Q1

REPORT INFORMATION
  Report Type: 
  Country: None (occurrence: None)
  Receive Date: 20120128
  Receipt Date: 20110119
  Transmission Date: 20120608
  Serious: No
  Sender: FDA-Public Use
  Company Number: US-ABBOTT-11P-163-0699274-00

PATIENT
  Age: 41 Year
  Sex: Female

DRUGS (8)
  1. LORAZEPAM [Concomitant]
     Indication: ANXIETY
     Dosage: AT BEDTIME
     Route: 048
  2. AMITRIPTYLINE HCL [Concomitant]
     Indication: DEPRESSION
  3. LORAZEPAM [Concomitant]
     Indication: DEPRESSION
  4. SULFASALAZINE [Concomitant]
     Indication: CROHN'S DISEASE
     Route: 048
  5. CITALOPRAM [Concomitant]
     Indication: DEPRESSION
     Route: 048
  6. HUMIRA [Suspect]
     Indication: CROHN'S DISEASE
     Dates: start: 20090101, end: 20100801
  7. HUMIRA [Suspect]
     Dates: start: 20101101
  8. AMITRIPTYLINE HCL [Concomitant]
     Indication: MUSCLE SPASMS
     Route: 048

REACTIONS (1)
  - INJECTION SITE PAIN [None]
